FAERS Safety Report 8061607-6 (Version None)
Quarter: 2012Q1

REPORT INFORMATION
  Report Type: 
  Country: None (occurrence: None)
  Receive Date: 20120122
  Receipt Date: 20120119
  Transmission Date: 20120608
  Serious: Yes (Hospitalization)
  Sender: FDA-Public Use
  Company Number: SE-ROCHE-1031787

PATIENT
  Sex: Female

DRUGS (2)
  1. CITALOPRAM [Suspect]
     Indication: PRODUCT USED FOR UNKNOWN INDICATION
  2. CLONAZEPAM [Suspect]
     Indication: ANXIETY

REACTIONS (1)
  - NEPHROLITHIASIS [None]
